FAERS Safety Report 12983155 (Version 1)
Quarter: 2016Q4

REPORT INFORMATION
  Report Type: Spontaneous
  Country: US (occurrence: US)
  Receive Date: 20161129
  Receipt Date: 20161129
  Transmission Date: 20170207
  Serious: No
  Sender: FDA-Public Use
  Company Number: None

PATIENT

DRUGS (2)
  1. BUDESONIDE BUDESONIDE [Suspect]
     Active Substance: BUDESONIDE
  2. IPRATROPIUM BROMIDE. [Suspect]
     Active Substance: IPRATROPIUM BROMIDE

REACTIONS (2)
  - Physical product label issue [None]
  - Product packaging confusion [None]
